FAERS Safety Report 16834582 (Version 7)
Quarter: 2020Q1

REPORT INFORMATION
  Report Type: Spontaneous
  Country: US (occurrence: US)
  Receive Date: 20190920
  Receipt Date: 20200205
  Transmission Date: 20200409
  Serious: Yes (Other)
  Sender: FDA-Public Use
  Company Number: US-SHIRE-US201931127

PATIENT
  Sex: Female

DRUGS (3)
  1. GAMMAGARD LIQUID [Suspect]
     Active Substance: HUMAN IMMUNOGLOBULIN G
     Dosage: UNK UNK, EVERY 4 WK
     Route: 042
  2. GAMMAGARD LIQUID [Suspect]
     Active Substance: HUMAN IMMUNOGLOBULIN G
     Dosage: UNK, 1X/2WKS
     Route: 042
  3. GAMMAGARD LIQUID [Suspect]
     Active Substance: HUMAN IMMUNOGLOBULIN G
     Indication: MULTIFOCAL MOTOR NEUROPATHY
     Dosage: UNK UNK, EVERY 4 WK
     Route: 042
     Dates: start: 201810

REACTIONS (14)
  - Herpes zoster [Unknown]
  - Adverse drug reaction [Unknown]
  - Amyotrophic lateral sclerosis [Unknown]
  - Eating disorder [Unknown]
  - Weight decreased [Unknown]
  - Lumbar puncture [Unknown]
  - Crying [Unknown]
  - Infusion related reaction [Unknown]
  - Influenza like illness [Unknown]
  - Musculoskeletal discomfort [Unknown]
  - Headache [Unknown]
  - Stress [Unknown]
  - Therapeutic product effect incomplete [Unknown]
  - Insomnia [Unknown]
